FAERS Safety Report 14368378 (Version 2)
Quarter: 2018Q1

REPORT INFORMATION
  Report Type: Report from Study
  Country: NL (occurrence: NL)
  Receive Date: 20180109
  Receipt Date: 20180111
  Transmission Date: 20180509
  Serious: Yes (Hospitalization)
  Sender: FDA-Public Use
  Company Number: PHHY2017NL187046

PATIENT
  Age: 64 Year
  Sex: Female
  Weight: 63 kg

DRUGS (3)
  1. ZOMETA [Suspect]
     Active Substance: ZOLEDRONIC ACID
     Indication: METASTASES TO LYMPH NODES
     Dosage: 4 MG/100ML, QMO
     Route: 042
     Dates: start: 201704
  2. ZOMETA [Suspect]
     Active Substance: ZOLEDRONIC ACID
     Indication: BREAST CANCER METASTATIC
  3. ZOMETA [Suspect]
     Active Substance: ZOLEDRONIC ACID
     Indication: METASTASES TO BONE

REACTIONS (1)
  - Hip fracture [Recovered/Resolved with Sequelae]

NARRATIVE: CASE EVENT DATE: 20171203
